FAERS Safety Report 25169033 (Version 2)
Quarter: 2025Q2

REPORT INFORMATION
  Report Type: Spontaneous
  Country: US (occurrence: US)
  Receive Date: 20250407
  Receipt Date: 20250417
  Transmission Date: 20250717
  Serious: Yes (Life-Threatening, Hospitalization)
  Sender: TEVA
  Company Number: US-TEVA-VS-3317648

PATIENT
  Age: 27 Year
  Sex: Female

DRUGS (1)
  1. EPINEPHRINE [Suspect]
     Active Substance: EPINEPHRINE
     Indication: Anaphylactic reaction
     Route: 042

REACTIONS (4)
  - Arteriospasm coronary [Recovered/Resolved]
  - Incorrect route of product administration [Unknown]
  - Cardiogenic shock [Recovered/Resolved]
  - Accidental overdose [Unknown]
